FAERS Safety Report 11549868 (Version 2)
Quarter: 2015Q4

REPORT INFORMATION
  Report Type: Spontaneous
  Country: US (occurrence: US)
  Receive Date: 20150924
  Receipt Date: 20151118
  Transmission Date: 20160304
  Serious: Yes (Hospitalization, Other)
  Sender: FDA-Public Use
  Company Number: US-INCYTE CORPORATION-2015IN003530

PATIENT
  Age: 63 Year
  Sex: Male
  Weight: 85 kg

DRUGS (6)
  1. OXYCODONE [Concomitant]
     Active Substance: OXYCODONE
     Indication: PAIN
     Dosage: PRN
  2. REVLIMID [Concomitant]
     Active Substance: LENALIDOMIDE
     Indication: MYELOFIBROSIS
     Dosage: UNK
     Dates: start: 20150807, end: 20150812
  3. JAKAFI [Suspect]
     Active Substance: RUXOLITINIB
     Indication: MYELOFIBROSIS
     Dosage: 10 MG, BID
     Route: 048
     Dates: start: 201501, end: 20150716
  4. JAKAFI [Suspect]
     Active Substance: RUXOLITINIB
     Dosage: 10 MG, BID
     Route: 048
     Dates: start: 20150824
  5. EXJADE [Concomitant]
     Active Substance: DEFERASIROX
     Indication: IRON OVERLOAD
     Dosage: UNK
  6. DANAZOL. [Concomitant]
     Active Substance: DANAZOL

REACTIONS (12)
  - Haemoglobin decreased [Unknown]
  - Drug ineffective [Unknown]
  - Leukocytosis [Recovering/Resolving]
  - Thrombocytopenia [Unknown]
  - Splenomegaly [Recovering/Resolving]
  - Epistaxis [Unknown]
  - Anaemia [Recovering/Resolving]
  - Chest pain [Unknown]
  - Abdominal discomfort [Recovering/Resolving]
  - Iron overload [Unknown]
  - Platelet count decreased [Unknown]
  - Liver function test abnormal [Recovering/Resolving]

NARRATIVE: CASE EVENT DATE: 20150807
